FAERS Safety Report 7040374-9 (Version None)
Quarter: 2010Q4

REPORT INFORMATION
  Report Type: 
  Country: None (occurrence: None)
  Receive Date: 20101008
  Receipt Date: 20101008
  Transmission Date: 20110411
  Serious: No
  Sender: FDA-Public Use
  Company Number: None

PATIENT
  Age: 65 Year
  Sex: Male
  Weight: 77.5651 kg

DRUGS (1)
  1. RAMIPRIL [Suspect]
     Indication: COUGH
     Dosage: 10 MG BID PO
     Route: 048

REACTIONS (1)
  - COUGH [None]
